FAERS Safety Report 17156977 (Version 1)
Quarter: 2019Q4

REPORT INFORMATION
  Report Type: Report from Study
  Country: US (occurrence: US)
  Receive Date: 20191216
  Receipt Date: 20191216
  Transmission Date: 20200122
  Serious: Yes (Hospitalization, Other)
  Sender: FDA-Public Use
  Company Number: US-TEVA-714649USA

PATIENT
  Age: 44 Year
  Sex: Female

DRUGS (3)
  1. PERPHENAZINE. [Suspect]
     Active Substance: PERPHENAZINE
     Dates: end: 201611
  2. HCTZ [Suspect]
     Active Substance: HYDROCHLOROTHIAZIDE
     Dates: end: 201611
  3. CLOZAPINE. [Suspect]
     Active Substance: CLOZAPINE
     Dosage: 200 MILLIGRAM DAILY; QHS
     Route: 048

REACTIONS (3)
  - Hypokalaemia [Recovered/Resolved]
  - Adverse event [Unknown]
  - Electrocardiogram QT prolonged [Recovered/Resolved]

NARRATIVE: CASE EVENT DATE: 20161102
